FAERS Safety Report 9852912 (Version 1)
Quarter: 2014Q1

REPORT INFORMATION
  Report Type: Spontaneous
  Country: US (occurrence: None)
  Receive Date: 20140128
  Receipt Date: 20140128
  Transmission Date: 20141002
  Serious: Yes (Hospitalization)
  Sender: FDA-Public Use
  Company Number: None

PATIENT
  Age: 58 Year
  Sex: Male
  Weight: 98 kg

DRUGS (8)
  1. ATORVASTATIN [Concomitant]
  2. LINZESS [Suspect]
     Indication: CONSTIPATION
     Route: 048
  3. ISOSORBIDE MONONITRATE [Concomitant]
  4. CLONAZEPAM [Concomitant]
  5. BUPROPION [Concomitant]
  6. ESCITALOPRAM [Concomitant]
  7. CARVEDILOL [Concomitant]
  8. CELECOXIB [Concomitant]

REACTIONS (7)
  - Abdominal pain [None]
  - Diarrhoea [None]
  - Dizziness [None]
  - Gait disturbance [None]
  - Hyperhidrosis [None]
  - Dizziness [None]
  - Inappropriate schedule of drug administration [None]
